FAERS Safety Report 9509225 (Version 1)
Quarter: 2013Q3

REPORT INFORMATION
  Report Type: Spontaneous
  Country: AU (occurrence: AU)
  Receive Date: 20130909
  Receipt Date: 20130909
  Transmission Date: 20140515
  Serious: Yes (Other)
  Sender: FDA-Public Use
  Company Number: AU-CELGENEUS-008-21660-13083767

PATIENT
  Age: 83 Year
  Sex: Female

DRUGS (2)
  1. ABRAXANE [Suspect]
     Indication: METASTATIC MALIGNANT MELANOMA
     Route: 041
  2. ABRAXANE [Suspect]
     Route: 041

REACTIONS (1)
  - Pericardial effusion [Unknown]
